FAERS Safety Report 10547041 (Version 1)
Quarter: 2014Q4

REPORT INFORMATION
  Report Type: Spontaneous
  Country: US (occurrence: US)
  Receive Date: 20141027
  Receipt Date: 20141027
  Transmission Date: 20150529
  Serious: No
  Sender: FDA-Public Use
  Company Number: US-ABBVIE-14P-163-1269655-00

PATIENT
  Sex: Female
  Weight: 58.57 kg

DRUGS (1)
  1. LUPRON DEPOT [Suspect]
     Active Substance: LEUPROLIDE ACETATE
     Indication: IN VITRO FERTILISATION
     Dosage: 2 DOSES
     Route: 030
     Dates: start: 2007

REACTIONS (5)
  - Emotional disorder [Recovered/Resolved]
  - Aggression [Recovered/Resolved]
  - Hot flush [Recovered/Resolved]
  - Stress [Recovered/Resolved]
  - Off label use [Recovered/Resolved]

NARRATIVE: CASE EVENT DATE: 2007
